FAERS Safety Report 5637201-0 (Version None)
Quarter: 2008Q1

REPORT INFORMATION
  Report Type: 
  Country: None (occurrence: None)
  Receive Date: 20080219
  Receipt Date: 20080205
  Transmission Date: 20080703
  Serious: Yes (Other)
  Sender: FDA-Public Use
  Company Number: 2008003866

PATIENT
  Age: 34 Year
  Sex: Female
  Weight: 68.0396 kg

DRUGS (2)
  1. BENADRYL [Suspect]
     Indication: URTICARIA
     Dosage: 3 25MG TABLETS, ORAL
     Route: 048
     Dates: start: 20080205
  2. CHANTIX [Suspect]
     Indication: SMOKING CESSATION THERAPY
     Dosage: 1MG BID (1 MG, 2 IN 1 D), ORAL
     Route: 048
     Dates: start: 20080101, end: 20080205

REACTIONS (3)
  - CONDITION AGGRAVATED [None]
  - DRUG INEFFECTIVE [None]
  - URTICARIA [None]
